FAERS Safety Report 8846804 (Version 3)
Quarter: 2013Q1

REPORT INFORMATION
  Report Type: Spontaneous
  Country: US (occurrence: None)
  Receive Date: 20121016
  Receipt Date: 20130219
  Transmission Date: 20140127
  Serious: Yes (Hospitalization, Other)
  Sender: FDA-Public Use
  Company Number: 2012-002139

PATIENT
  Age: 70 Year
  Sex: Female

DRUGS (7)
  1. ACTONEL (RISEDRONATE SODIUM) TABLET, 35MG [Suspect]
     Indication: OSTEOPENIA
     Route: 048
     Dates: start: 20041122, end: 200704
  2. FOSAMAX (ALENDRONATE SODIUM) [Suspect]
     Indication: OSTEOPOROSIS
     Route: 048
     Dates: start: 200701, end: 200802
  3. FOSAMAX (ALENDRONATE SODIUM) [Suspect]
     Indication: OSTEOPOROSIS PROPHYLAXIS
     Route: 048
     Dates: start: 200701, end: 200802
  4. ALENDRONATE SODIUM [Suspect]
     Indication: OSTEOPOROSIS
     Route: 048
     Dates: start: 200803, end: 201107
  5. ALENDRONATE SODIUM [Suspect]
     Indication: OSTEOPOROSIS PROPHYLAXIS
     Route: 048
     Dates: start: 200803, end: 201107
  6. BONIVA [Suspect]
     Route: 048
     Dates: start: 20070913
  7. SIMVASTATIN (SIMVASTATIN) [Concomitant]

REACTIONS (14)
  - Femur fracture [None]
  - Pathological fracture [None]
  - Fall [None]
  - Pain in extremity [None]
  - Fracture nonunion [None]
  - Device damage [None]
  - Bone disorder [None]
  - Pain [None]
  - Low turnover osteopathy [None]
  - Walking aid user [None]
  - Arthralgia [None]
  - Gait disturbance [None]
  - Arthralgia [None]
  - Osteogenesis imperfecta [None]
